FAERS Safety Report 13203611 (Version 4)
Quarter: 2017Q2

REPORT INFORMATION
  Report Type: Spontaneous
  Country: JP (occurrence: JP)
  Receive Date: 20170209
  Receipt Date: 20170412
  Transmission Date: 20170830
  Serious: Yes (Death, Other)
  Sender: FDA-Public Use
  Company Number: JP-009507513-1701JPN002828J

PATIENT
  Age: 7 Year
  Sex: Female
  Weight: 15.8 kg

DRUGS (16)
  1. PREDONINE [Concomitant]
     Active Substance: PREDNISOLONE
     Dosage: 12 MG, UNK
     Route: 051
     Dates: end: 20160819
  2. FINIBAX [Concomitant]
     Active Substance: DORIPENEM MONOHYDRATE
     Dosage: 2.25 G, UNK
     Route: 051
     Dates: end: 20160822
  3. FOSCAVIR [Concomitant]
     Active Substance: FOSCARNET SODIUM
     Dosage: 2.4 G, UNK
     Route: 051
     Dates: end: 20161014
  4. OMEPRAZOLE. [Concomitant]
     Active Substance: OMEPRAZOLE
     Dosage: 20 MG, UNK
     Route: 051
     Dates: end: 20161014
  5. MILRINONE [Concomitant]
     Active Substance: MILRINONE
     Dosage: 5.3 MG, UNK
     Route: 051
     Dates: start: 20160819, end: 20161014
  6. DOBUTAMINE [Concomitant]
     Active Substance: DOBUTAMINE\DOBUTAMINE HYDROCHLORIDE
     Dosage: 72 MG, UNK
     Route: 051
     Dates: start: 20160819, end: 20161014
  7. VICCLOX [Concomitant]
     Active Substance: ACYCLOVIR SODIUM
     Dosage: 600 MG, UNK
     Route: 051
     Dates: start: 20160816, end: 20160824
  8. ANAEMETRO [Concomitant]
     Active Substance: METRONIDAZOLE
     Dosage: 600 MG, UNK
     Route: 051
     Dates: end: 20160816
  9. FUROSEMIDE. [Concomitant]
     Active Substance: FUROSEMIDE
     Dosage: 5 MG, UNK
     Route: 051
     Dates: start: 20160819, end: 20160923
  10. METHYLPREDNISOLONE NA SUCCINATE [Concomitant]
     Dosage: 450 MG, UNK
     Route: 051
     Dates: start: 20160819, end: 20160828
  11. INTRALIPOS [Concomitant]
     Active Substance: SOYBEAN OIL
     Dosage: 50 ML, UNK
     Route: 051
     Dates: end: 20160912
  12. CANCIDAS [Suspect]
     Active Substance: CASPOFUNGIN ACETATE
     Dosage: 35 MG, QD
     Route: 041
     Dates: start: 20160814, end: 20161013
  13. CANCIDAS [Suspect]
     Active Substance: CASPOFUNGIN ACETATE
     Indication: BRONCHOPULMONARY ASPERGILLOSIS
     Dosage: 50 MG, QD
     Route: 041
     Dates: start: 20160813, end: 20160813
  14. ARASENA-A [Concomitant]
     Active Substance: VIDARABINE
     Dosage: 150 MG, UNK
     Route: 051
     Dates: end: 20160926
  15. VFEND [Concomitant]
     Active Substance: VORICONAZOLE
     Indication: BRONCHOPULMONARY ASPERGILLOSIS
     Dosage: 240 MG, UNK
     Route: 051
     Dates: end: 20161014
  16. NEUTROGIN [Concomitant]
     Active Substance: LENOGRASTIM
     Dosage: 100 MICROGRAM, UNK
     Route: 051
     Dates: end: 20161014

REACTIONS (3)
  - Drug ineffective [Unknown]
  - Histiocytosis haematophagic [Fatal]
  - Hepatic function abnormal [Not Recovered/Not Resolved]

NARRATIVE: CASE EVENT DATE: 20160819
